FAERS Safety Report 7190509-2 (Version None)
Quarter: 2010Q4

REPORT INFORMATION
  Report Type: 
  Country: None (occurrence: None)
  Receive Date: 20101221
  Receipt Date: 20101221
  Transmission Date: 20110411
  Serious: Yes (Death)
  Sender: FDA-Public Use
  Company Number: None

PATIENT
  Sex: Male
  Weight: 53.978 kg

DRUGS (1)
  1. NIACIN [Suspect]
     Indication: HYPERTRIGLYCERIDAEMIA
     Dosage: NIACIN 100MG THREE TIME A DAY PO
     Route: 048

REACTIONS (10)
  - ASCITES [None]
  - BLOOD BILIRUBIN INCREASED [None]
  - COAGULOPATHY [None]
  - ENCEPHALOPATHY [None]
  - FAILURE TO THRIVE [None]
  - HEPATOTOXICITY [None]
  - JAUNDICE [None]
  - PERITONITIS BACTERIAL [None]
  - RENAL FAILURE [None]
  - TRANSAMINASES INCREASED [None]
